FAERS Safety Report 9917871 (Version 1)
Quarter: 2014Q1

REPORT INFORMATION
  Report Type: Spontaneous
  Country: IT (occurrence: IT)
  Receive Date: 20140221
  Receipt Date: 20140221
  Transmission Date: 20141002
  Serious: Yes (Hospitalization)
  Sender: FDA-Public Use
  Company Number: IT-BRISTOL-MYERS SQUIBB COMPANY-20211637

PATIENT
  Age: 85 Year
  Sex: Male

DRUGS (3)
  1. COUMADIN TABS 5 MG [Suspect]
     Indication: ATRIAL FIBRILLATION
     Dosage: 1 DF = 1UNIT?INTERRUPTED ON 14DEC13
     Route: 048
     Dates: start: 20131201
  2. CORDARONE [Concomitant]
     Dosage: TABLET
     Route: 048
  3. RYTMONORM [Concomitant]
     Dosage: TABLET
     Route: 048

REACTIONS (1)
  - Joint effusion [Unknown]
